FAERS Safety Report 24212416 (Version 1)
Quarter: 2024Q3

REPORT INFORMATION
  Report Type: Report from Study
  Country: US (occurrence: None)
  Receive Date: 20240815
  Receipt Date: 20240815
  Transmission Date: 20241017
  Serious: Yes (Hospitalization)
  Sender: ASTRAZENECA
  Company Number: 2024A180914

PATIENT
  Age: 760 Month
  Sex: Female
  Weight: 225.8 kg

DRUGS (2)
  1. FASENRA [Suspect]
     Active Substance: BENRALIZUMAB
     Indication: Asthma
     Dosage: INJECT THE CONTENTS OF 1 PEN (30 MG) UNDER THE SKIN AT WEEKS 0, 4, AND 8 FOLLOWED BY EVERY 8 WEEK...
     Route: 058
     Dates: start: 20240703
  2. FASENRA [Suspect]
     Active Substance: BENRALIZUMAB
     Indication: Asthma
     Dosage: INJECT THE CONTENTS OF 1 PEN (30 MG) UNDER THE SKIN AT WEEKS 0, 4, AND 8 FOLLOWED BY EVERY 8 WEEK...
     Route: 058
     Dates: start: 20240703

REACTIONS (2)
  - Paraganglion neoplasm [Unknown]
  - Vasculitis [Recovering/Resolving]

NARRATIVE: CASE EVENT DATE: 20240701
